FAERS Safety Report 8204606-3 (Version None)
Quarter: 2012Q1

REPORT INFORMATION
  Report Type: 
  Country: None (occurrence: None)
  Receive Date: 20120313
  Receipt Date: 20120307
  Transmission Date: 20120608
  Serious: Yes (Other)
  Sender: FDA-Public Use
  Company Number: ES-PFIZER INC-2012061813

PATIENT
  Age: 44 Year
  Sex: Male

DRUGS (3)
  1. MICARDIS HCT [Suspect]
     Indication: HYPERTENSION
     Dosage: UNK
     Dates: start: 20080101
  2. LYRICA [Suspect]
     Indication: NECK PAIN
     Dosage: 75 MG, 1X/DAY
     Route: 048
     Dates: start: 20120307
  3. TRAMADOL HYDROCHLORIDE AND ACETAMINOPHEN [Concomitant]
     Indication: NECK PAIN
     Dosage: ONE TABLET THREE TIMES A DAY
     Dates: start: 20120226

REACTIONS (3)
  - DIZZINESS [None]
  - VISION BLURRED [None]
  - HYPERTENSION [None]
